FAERS Safety Report 11701841 (Version 1)
Quarter: 2015Q4

REPORT INFORMATION
  Report Type: Spontaneous
  Country: US (occurrence: US)
  Receive Date: 20151105
  Receipt Date: 20151105
  Transmission Date: 20160304
  Serious: No
  Sender: FDA-Public Use
  Company Number: US-MALLINCKRODT-T201504663

PATIENT
  Sex: Male
  Weight: 72 kg

DRUGS (12)
  1. CALCIUM [Concomitant]
     Active Substance: CALCIUM
     Dosage: 1200 MG, QD
  2. PREDNISONE. [Concomitant]
     Active Substance: PREDNISONE
  3. ANOROL [Concomitant]
  4. FENTANYL TRANSDERMAL SYSTEM [Suspect]
     Active Substance: FENTANYL
     Dosage: 125 OR 150 MCG/HR DOSAGE
     Route: 062
     Dates: start: 2011, end: 2013
  5. XANAX [Concomitant]
     Active Substance: ALPRAZOLAM
  6. FORTEO [Concomitant]
     Active Substance: TERIPARATIDE
  7. FENTANYL TRANSDERMAL SYSTEM [Suspect]
     Active Substance: FENTANYL
     Indication: PAIN
     Dosage: TWO PATCHES (200 MCG/HR) EVERY 3 DAYS
     Route: 062
     Dates: start: 2013
  8. IMURAN [Concomitant]
     Active Substance: AZATHIOPRINE
  9. WELLBUTRIN [Concomitant]
     Active Substance: BUPROPION HYDROCHLORIDE
  10. VITAMIN D3 [Concomitant]
     Active Substance: CHOLECALCIFEROL
  11. ASPIRIN. [Concomitant]
     Active Substance: ASPIRIN
  12. OXYCODONE [Concomitant]
     Active Substance: OXYCODONE
     Indication: BREAKTHROUGH PAIN
     Dosage: 30 MG, UNK

REACTIONS (4)
  - Product adhesion issue [Not Recovered/Not Resolved]
  - Drug withdrawal syndrome [Not Recovered/Not Resolved]
  - Drug effect delayed [Not Recovered/Not Resolved]
  - Drug effect decreased [Not Recovered/Not Resolved]

NARRATIVE: CASE EVENT DATE: 2011
